FAERS Safety Report 6732625-2 (Version None)
Quarter: 2010Q2

REPORT INFORMATION
  Report Type: 
  Country: None (occurrence: None)
  Receive Date: 20100514
  Receipt Date: 20100507
  Transmission Date: 20101027
  Serious: Yes (Other)
  Sender: FDA-Public Use
  Company Number: 2009SP022956

PATIENT
  Age: 40 Year
  Sex: Male

DRUGS (9)
  1. MIRTAZAPINE [Suspect]
     Indication: DRUG USE FOR UNKNOWN INDICATION
  2. ABILIFY [Suspect]
     Indication: METABOLIC SYNDROME
     Dosage: 15 MG; QAM; PO, ; PO
     Route: 048
     Dates: start: 20080401
  3. ABILIFY [Suspect]
     Indication: SCHIZOAFFECTIVE DISORDER
     Dosage: 15 MG; QAM; PO, ; PO
     Route: 048
     Dates: start: 20080401
  4. DULOXETINE HYDROCHLORIDE [Suspect]
     Indication: DRUG USE FOR UNKNOWN INDICATION
  5. QUETIAPINE [Suspect]
     Indication: DRUG USE FOR UNKNOWN INDICATION
  6. RISPERIDONE [Suspect]
     Indication: DRUG USE FOR UNKNOWN INDICATION
  7. VALPROATE SODIUM [Suspect]
     Indication: DRUG USE FOR UNKNOWN INDICATION
  8. LITHIUM [Concomitant]
  9. EFFEXOR [Concomitant]

REACTIONS (8)
  - BLOOD ALKALINE PHOSPHATASE INCREASED [None]
  - FRACTURE [None]
  - GAMMA-GLUTAMYLTRANSFERASE INCREASED [None]
  - HEPATIC FUNCTION ABNORMAL [None]
  - HYPOTHYROIDISM [None]
  - METABOLIC SYNDROME [None]
  - SCHIZOAFFECTIVE DISORDER [None]
  - WEIGHT INCREASED [None]
